FAERS Safety Report 7493326-9 (Version None)
Quarter: 2011Q2

REPORT INFORMATION
  Report Type: 
  Country: None (occurrence: None)
  Receive Date: 20110520
  Receipt Date: 20110516
  Transmission Date: 20111010
  Serious: Yes (Other)
  Sender: FDA-Public Use
  Company Number: US-PFIZER INC-2011023021

PATIENT
  Sex: Male

DRUGS (4)
  1. CHANTIX [Suspect]
     Indication: SMOKING CESSATION THERAPY
     Dosage: STARTER PACK AND CONTINUING PACK
     Dates: start: 20090701, end: 20090901
  2. METHOTREXATE [Concomitant]
     Indication: RHEUMATOID ARTHRITIS
     Dosage: UNK
     Dates: start: 19980101, end: 20110101
  3. FOLIC ACID [Concomitant]
     Dosage: UNK
     Dates: start: 19980101
  4. LISINOPRIL [Concomitant]
     Indication: HYPERTENSION
     Dosage: UNK
     Dates: start: 20050101

REACTIONS (8)
  - FALL [None]
  - OEDEMA PERIPHERAL [None]
  - PAIN [None]
  - MULTIPLE INJURIES [None]
  - HEAD INJURY [None]
  - HAND FRACTURE [None]
  - JOINT DISLOCATION [None]
  - LOSS OF CONSCIOUSNESS [None]
